FAERS Safety Report 8510722-9 (Version None)
Quarter: 2012Q3

REPORT INFORMATION
  Report Type: 
  Country: None (occurrence: None)
  Receive Date: 20120716
  Receipt Date: 20120711
  Transmission Date: 20120928
  Serious: No
  Sender: FDA-Public Use
  Company Number: US-PFIZER INC-2012132649

PATIENT
  Sex: Male
  Weight: 84 kg

DRUGS (3)
  1. ALLOPURINOL [Concomitant]
     Indication: GOUT
     Dosage: UNK
  2. ASPIRIN [Concomitant]
     Dosage: 81 MG, UNK
  3. FLECTOR [Suspect]
     Indication: PAIN
     Dosage: UNK, 1X/DAY
     Route: 061
     Dates: start: 20120426, end: 20120531

REACTIONS (1)
  - DRUG INEFFECTIVE [None]
